FAERS Safety Report 4587476-4 (Version None)
Quarter: 2005Q1

REPORT INFORMATION
  Report Type: 
  Country: None (occurrence: None)
  Receive Date: 20050215
  Receipt Date: 20050203
  Transmission Date: 20050727
  Serious: Yes (Hospitalization, Other)
  Sender: FDA-Public Use
  Company Number: 2005025578

PATIENT
  Age: 53 Year
  Sex: Male
  Weight: 49.8957 kg

DRUGS (4)
  1. PHENYTOIN [Suspect]
     Indication: CONVULSION
     Dosage: 300 MG (100 MG, 1 IN 1 D)
     Dates: start: 20041024
  2. METOPROLOL TARTRATE [Concomitant]
  3. PANTOPRAZOLE (PANTOPRAZOLE) [Concomitant]
  4. GEZOR (HYDROCHLOROTHIAZIDE, QUINAPRIL HYDROCHLORIDE) [Concomitant]

REACTIONS (5)
  - BLOOD UREA INCREASED [None]
  - COORDINATION ABNORMAL [None]
  - DRUG TOXICITY [None]
  - MEDICATION ERROR [None]
  - NYSTAGMUS [None]
